FAERS Safety Report 9701421 (Version 2)
Quarter: 2013Q4

REPORT INFORMATION
  Report Type: Spontaneous
  Country: US (occurrence: US)
  Receive Date: 20131121
  Receipt Date: 20131121
  Transmission Date: 20140711
  Serious: No
  Sender: FDA-Public Use
  Company Number: US-GILEAD-2008-0016186

PATIENT
  Sex: Male
  Weight: 81.65 kg

DRUGS (11)
  1. LETAIRIS [Suspect]
     Indication: PULMONARY ARTERIAL HYPERTENSION
     Route: 048
     Dates: start: 20080404
  2. LASIX [Concomitant]
     Route: 048
  3. CARDURA [Concomitant]
     Route: 048
  4. NEURONTIN [Concomitant]
     Route: 048
  5. VICODIN ES [Concomitant]
     Route: 048
  6. VITAMIN E [Concomitant]
     Route: 048
  7. ALLOPURINOL [Concomitant]
     Route: 048
  8. METOPROLOL [Concomitant]
     Route: 048
  9. VITAMIN B-1 [Concomitant]
     Route: 048
  10. PLAVIX [Concomitant]
     Route: 048
  11. MAXIDE [Concomitant]
     Route: 048

REACTIONS (2)
  - Erythema [Unknown]
  - Local swelling [Unknown]
